FAERS Safety Report 17801767 (Version 1)
Quarter: 2020Q2

REPORT INFORMATION
  Report Type: Spontaneous
  Country: US (occurrence: US)
  Receive Date: 20200518
  Receipt Date: 20200518
  Transmission Date: 20200714
  Serious: Yes (Other)
  Sender: FDA-Public Use
  Company Number: None

PATIENT
  Age: 72 Year
  Sex: Female
  Weight: 118.35 kg

DRUGS (22)
  1. IBRANCE [Suspect]
     Active Substance: PALBOCICLIB
     Indication: BREAST CANCER
     Route: 048
     Dates: start: 20200502, end: 20200518
  2. SIMETHICONE (DIMETHICONE) [Concomitant]
     Active Substance: DIMETHICONE
  3. PEPCID [Concomitant]
     Active Substance: FAMOTIDINE
  4. FOLIC ACID. [Concomitant]
     Active Substance: FOLIC ACID
  5. NYSTATIN. [Concomitant]
     Active Substance: NYSTATIN
  6. ELIQUIS [Concomitant]
     Active Substance: APIXABAN
  7. ROBAXIN [Concomitant]
     Active Substance: METHOCARBAMOL
  8. MICONAZOLE. [Concomitant]
     Active Substance: MICONAZOLE
  9. HYDROXYZINE [Concomitant]
     Active Substance: HYDROXYZINE HYDROCHLORIDE
  10. TMC CREAM [Concomitant]
  11. TRAMADOL. [Concomitant]
     Active Substance: TRAMADOL
  12. RANOLAZINE. [Concomitant]
     Active Substance: RANOLAZINE
  13. NAMENDA [Concomitant]
     Active Substance: MEMANTINE HYDROCHLORIDE
  14. IPRATROPIUM [Concomitant]
     Active Substance: IPRATROPIUM
  15. ZOFRAN [Concomitant]
     Active Substance: ONDANSETRON HYDROCHLORIDE
  16. NORCO [Concomitant]
     Active Substance: ACETAMINOPHEN\HYDROCODONE BITARTRATE
  17. LASIX [Concomitant]
     Active Substance: FUROSEMIDE
  18. POTASSIUM CHLORIDE. [Concomitant]
     Active Substance: POTASSIUM CHLORIDE
  19. MECLIZINE [Concomitant]
     Active Substance: MECLIZINE HYDROCHLORIDE
  20. MAGNESIUM [Concomitant]
     Active Substance: MAGNESIUM
  21. PERCOCET [Concomitant]
     Active Substance: ACETAMINOPHEN\OXYCODONE HYDROCHLORIDE
  22. DONEPEZIL. [Concomitant]
     Active Substance: DONEPEZIL

REACTIONS (1)
  - Hospice care [None]

NARRATIVE: CASE EVENT DATE: 20200518
